FAERS Safety Report 11330937 (Version 3)
Quarter: 2015Q4

REPORT INFORMATION
  Report Type: Report from Study
  Country: JP (occurrence: JP)
  Receive Date: 20150803
  Receipt Date: 20151015
  Transmission Date: 20160304
  Serious: Yes (Hospitalization)
  Sender: FDA-Public Use
  Company Number: JP-SA-2015SA069598

PATIENT
  Age: 42 Year
  Sex: Male
  Weight: 63 kg

DRUGS (17)
  1. FUROSEMIDE. [Concomitant]
     Active Substance: FUROSEMIDE
     Dates: start: 20150417
  2. ELPLAT [Suspect]
     Active Substance: OXALIPLATIN
     Indication: GASTRIC CANCER
     Route: 041
     Dates: start: 20150511, end: 20150511
  3. MOSAPRIDE CITRATE [Concomitant]
     Active Substance: MOSAPRIDE CITRATE
     Route: 048
     Dates: start: 20150409
  4. FERRIC SODIUM CITRATE [Concomitant]
     Active Substance: FERRIC SODIUM CITRATE
     Route: 048
     Dates: start: 20150410
  5. ZOLPIDEM TARTRATE. [Concomitant]
     Active Substance: ZOLPIDEM TARTRATE
     Dates: start: 20150430
  6. NEXIUM [Concomitant]
     Active Substance: ESOMEPRAZOLE MAGNESIUM
     Dates: start: 20150410
  7. HEPARINOID [Concomitant]
     Active Substance: CHONDROITIN SULFATE (BOVINE)
     Dosage: OINTMENT, CREAM AND SPRAY
     Dates: start: 20150427
  8. ELPLAT [Suspect]
     Active Substance: OXALIPLATIN
     Indication: GASTRIC CANCER
     Route: 041
     Dates: start: 20150427, end: 20150427
  9. TAS-118 [Suspect]
     Active Substance: INVESTIGATIONAL PRODUCT
     Indication: GASTRIC CANCER
     Route: 048
     Dates: start: 20150511, end: 20150518
  10. BROTIZOLAM [Concomitant]
     Active Substance: BROTIZOLAM
     Dates: start: 20150428
  11. AZUNOL [Concomitant]
     Active Substance: SODIUM GUALENATE
     Dosage: MOUTHWASH
     Dates: start: 20150427
  12. CALONAL [Concomitant]
     Active Substance: ACETAMINOPHEN
     Route: 048
     Dates: start: 20150509
  13. SPIRONOLACTONE. [Concomitant]
     Active Substance: SPIRONOLACTONE
     Dates: start: 20150427
  14. HEPARINOID [Concomitant]
     Active Substance: CHONDROITIN SULFATE (BOVINE)
     Dosage: OINTMENT, CREAM AND SPRAY
     Dates: start: 20150427
  15. ETIZOLAM [Concomitant]
     Active Substance: ETIZOLAM
     Dates: start: 20150427
  16. TAS-118 [Suspect]
     Active Substance: INVESTIGATIONAL PRODUCT
     Indication: GASTRIC CANCER
     Route: 048
     Dates: start: 20150427, end: 20150501
  17. MOHRUS [Concomitant]
     Active Substance: KETOPROFEN
     Dosage: TAPE (INCLUDING POULTICE)
     Dates: start: 20150429

REACTIONS (1)
  - Mental disorder [Not Recovered/Not Resolved]

NARRATIVE: CASE EVENT DATE: 20150513
